FAERS Safety Report 21098732 (Version 1)
Quarter: 2022Q3

REPORT INFORMATION
  Report Type: Spontaneous
  Country: GB (occurrence: GB)
  Receive Date: 20220719
  Receipt Date: 20220719
  Transmission Date: 20221027
  Serious: Yes (Life-Threatening, Other)
  Sender: FDA-Public Use
  Company Number: None

PATIENT
  Age: 79 Year
  Sex: Male
  Weight: 82 kg

DRUGS (14)
  1. HYDRALAZINE [Suspect]
     Active Substance: HYDRALAZINE HYDROCHLORIDE
     Indication: Product used for unknown indication
     Dosage: 25 MILLIGRAM, BID (ONE TABLET TO BE TAKEN TWICE A DAY)
     Route: 065
     Dates: start: 20220504
  2. AMLODIPINE [Concomitant]
     Active Substance: AMLODIPINE BESYLATE
     Dosage: 1 DOSAGE FORM, QD (ONE TABLET TO BE TAKEN ONCE A DAY IN THE MORNIN)
     Route: 065
     Dates: start: 20210324
  3. APRESOLINE HYDROCHLORIDE [Concomitant]
     Active Substance: HYDRALAZINE HYDROCHLORIDE
     Dosage: 1 DOSAGE FORM, BID (ONE TABLET TO BE TAKEN TWICE A DAY)
     Route: 065
     Dates: start: 20220425, end: 20220504
  4. ASPIRIN [Concomitant]
     Active Substance: ASPIRIN
     Indication: Myocardial infarction
     Dosage: 1 DOSAGE FORM, QD (TAKE ONE TABLET DAILY TO HELP PREVENT A HEART A)
     Route: 065
     Dates: start: 20191219
  5. BISOPROLOL [Concomitant]
     Active Substance: BISOPROLOL
     Dosage: 1 DOSAGE FORM, QD (ONE TABLET TO BE TAKEN ONCE A DAY)
     Route: 065
     Dates: start: 20211209
  6. DAPAGLIFLOZIN [Concomitant]
     Active Substance: DAPAGLIFLOZIN
     Indication: Diabetes mellitus
     Dosage: 1 DOSAGE FORM, QD (ONE TABLET TO BE TAKEN ONCE  A DAY FOR DIABETES)
     Route: 065
     Dates: start: 20220121
  7. DORZOLAMIDE [Concomitant]
     Active Substance: DORZOLAMIDE
     Dosage: 1 DOSAGE FORM, BID (INSTIL ONE DROP INTO LEFT EYE TWICE A DAY FOR G)
     Route: 065
     Dates: start: 20210104
  8. GLICLAZIDE [Concomitant]
     Active Substance: GLICLAZIDE
     Dosage: 2 DOSAGE FORM, BID (TAKE 2 TABLETS WITH BREAKFAST AND 2 TABLETS WIT)
     Route: 065
     Dates: start: 20191219
  9. HUMULIN L [Concomitant]
     Active Substance: INSULIN HUMAN
     Dosage: UNK (USE AS DIRECTED: INTERMEDIATE ACTING INSULIN FO)
     Route: 065
     Dates: start: 20200707
  10. HYPROMELLOSES [Concomitant]
     Active Substance: HYPROMELLOSES
     Dosage: 1 DOSAGE FORM, PRN (INSTIL ONE DROP INTO THE AFFECTED EYE(S) AS NEEDED)
     Route: 065
     Dates: start: 20210705
  11. LANSOPRAZOLE [Concomitant]
     Active Substance: LANSOPRAZOLE
     Dosage: 1 DOSAGE FORM, QD (ONE CAPSULE TO BE TAKEN ONCE A DAY)
     Route: 065
     Dates: start: 20210208
  12. LINAGLIPTIN [Concomitant]
     Active Substance: LINAGLIPTIN
     Dosage: 1 DOSAGE FORM, QD (ONE TABLET TO BE TAKEN ONCE A DAY AS DIRECTED F)
     Route: 065
     Dates: start: 20210208
  13. RAMIPRIL [Concomitant]
     Active Substance: RAMIPRIL
     Indication: Blood pressure measurement
     Dosage: 1 DOSAGE FORM, QD (TAKE ONE EVERY MORNING TO REDUCE BLOOD PRESSURE)
     Route: 065
     Dates: start: 20220203
  14. SIMVASTATIN [Concomitant]
     Active Substance: SIMVASTATIN
     Indication: Blood cholesterol
     Dosage: 1 DOSAGE FORM, QD (ONE TABLET TO BE TAKEN AT NIGHT TO LOWER CHOLES)
     Route: 065
     Dates: start: 20210421

REACTIONS (1)
  - Suicidal ideation [Recovered/Resolved]

NARRATIVE: CASE EVENT DATE: 20220714
